FAERS Safety Report 20484325 (Version 1)
Quarter: 2022Q1

REPORT INFORMATION
  Report Type: Spontaneous
  Country: CA (occurrence: CA)
  Receive Date: 20220217
  Receipt Date: 20220217
  Transmission Date: 20220424
  Serious: Yes (Other)
  Sender: FDA-Public Use
  Company Number: CA-FRESENIUS KABI-FK202201536

PATIENT
  Age: 42 Year
  Sex: Female
  Weight: 67.192 kg

DRUGS (1)
  1. INTRALIPID [Suspect]
     Active Substance: EGG PHOSPHOLIPIDS\GLYCERIN\SOYBEAN OIL
     Indication: Pregnancy
     Route: 042

REACTIONS (2)
  - Ultrasound antenatal screen [Unknown]
  - Ultrasound foetal abnormal [Unknown]
